FAERS Safety Report 7551763-8 (Version None)
Quarter: 2011Q2

REPORT INFORMATION
  Report Type: 
  Country: None (occurrence: None)
  Receive Date: 20110616
  Receipt Date: 20110607
  Transmission Date: 20111010
  Serious: Yes (Hospitalization)
  Sender: FDA-Public Use
  Company Number: A0931521A

PATIENT
  Age: 86 Year
  Sex: Female

DRUGS (3)
  1. PAXIL [Concomitant]
  2. MIRTAZAPINE [Concomitant]
  3. WELLBUTRIN [Suspect]
     Indication: DEPRESSION
     Dosage: 150MG PER DAY
     Route: 048

REACTIONS (2)
  - INJURY [None]
  - PSYCHOTIC DISORDER [None]
